FAERS Safety Report 7107934-8 (Version None)
Quarter: 2010Q4

REPORT INFORMATION
  Report Type: 
  Country: None (occurrence: None)
  Receive Date: 20101117
  Receipt Date: 20101111
  Transmission Date: 20110411
  Serious: Yes (Other)
  Sender: FDA-Public Use
  Company Number: JP-BAYER-201014156BYL

PATIENT
  Age: 67 Year
  Sex: Male
  Weight: 53 kg

DRUGS (17)
  1. NEXAVAR [Suspect]
     Indication: HEPATIC NEOPLASM MALIGNANT
     Dosage: TOTAL DAILY DOSE: 800 MG  UNIT DOSE: 200 MG
     Route: 048
     Dates: start: 20100325, end: 20100630
  2. NEXAVAR [Suspect]
     Dosage: UNIT DOSE: 200 MG
     Route: 048
     Dates: start: 20100701, end: 20100905
  3. NEXAVAR [Suspect]
     Dosage: UNIT DOSE: 200 MG
     Route: 048
     Dates: start: 20100910, end: 20101020
  4. NEXAVAR [Suspect]
     Dosage: UNIT DOSE: 200 MG
     Route: 048
     Dates: start: 20101021, end: 20101111
  5. TRANEXAMIC ACID [Concomitant]
     Indication: HAEMOPTYSIS
     Route: 048
     Dates: start: 20100701, end: 20100714
  6. HOKUNALIN:TAPE [Concomitant]
     Indication: COUGH
     Route: 062
     Dates: start: 20100701
  7. URSO 250 [Concomitant]
     Indication: JAUNDICE
     Route: 048
     Dates: start: 20100715
  8. URSO 250 [Concomitant]
     Route: 048
     Dates: start: 20080101, end: 20100714
  9. PURSENNID [Concomitant]
     Route: 048
     Dates: start: 20090101, end: 20100513
  10. FLIVAS OD [Concomitant]
     Route: 048
  11. BLADDERON [Concomitant]
     Route: 048
     Dates: start: 20100101
  12. STAYBLA [Concomitant]
     Route: 048
     Dates: start: 20090101
  13. PARIET [Concomitant]
     Route: 048
     Dates: start: 20080101
  14. PAXIL [Concomitant]
     Route: 048
     Dates: start: 20080101
  15. LENDORMIN D [Concomitant]
     Route: 048
     Dates: start: 20060101
  16. HUMALOG [Concomitant]
     Route: 042
     Dates: start: 20091001
  17. LANTUS [Concomitant]
     Route: 042
     Dates: start: 20091001

REACTIONS (21)
  - ABDOMINAL PAIN [None]
  - ABDOMINAL PAIN UPPER [None]
  - ALOPECIA [None]
  - CHEILITIS [None]
  - COUGH [None]
  - DEAFNESS [None]
  - DECREASED APPETITE [None]
  - DIARRHOEA [None]
  - FOLLICULITIS [None]
  - GLOSSITIS [None]
  - HAEMOPTYSIS [None]
  - HEADACHE [None]
  - HYPERTHYROIDISM [None]
  - HYPOGLYCAEMIA [None]
  - JAUNDICE [None]
  - PALMAR-PLANTAR ERYTHRODYSAESTHESIA SYNDROME [None]
  - PHARYNGITIS [None]
  - PRURITUS GENERALISED [None]
  - PYREXIA [None]
  - STOMATITIS [None]
  - TINNITUS [None]
